FAERS Safety Report 5831909-X (Version None)
Quarter: 2008Q3

REPORT INFORMATION
  Report Type: 
  Country: None (occurrence: None)
  Receive Date: 20080729
  Receipt Date: 20080714
  Transmission Date: 20090109
  Serious: Yes (Other)
  Sender: FDA-Public Use
  Company Number: 2008S1012374

PATIENT

DRUGS (1)
  1. FLUOXETINE [Suspect]
     Indication: DRUG USE FOR UNKNOWN INDICATION
     Dosage: TRANSPLACENTAL
     Route: 064

REACTIONS (9)
  - AGITATION NEONATAL [None]
  - DYSKINESIA NEONATAL [None]
  - HEAD CIRCUMFERENCE ABNORMAL [None]
  - MATERNAL DRUGS AFFECTING FOETUS [None]
  - NEONATAL DISORDER [None]
  - SMALL FOR DATES BABY [None]
  - SNEEZING [None]
  - SPINE MALFORMATION [None]
  - TALIPES [None]
